FAERS Safety Report 6526808-4 (Version None)
Quarter: 2010Q1

REPORT INFORMATION
  Report Type: 
  Country: None (occurrence: None)
  Receive Date: 20100104
  Receipt Date: 20100104
  Transmission Date: 20100710
  Serious: No
  Sender: FDA-Public Use
  Company Number: None

PATIENT
  Age: 43 Year
  Sex: Male
  Weight: 78.9259 kg

DRUGS (3)
  1. LAMISIL [Suspect]
     Indication: ONYCHOMYCOSIS
     Dosage: 250 MG ONCE DAILY ORAL
     Route: 048
     Dates: start: 20091021, end: 20091125
  2. BENICAR [Concomitant]
  3. ZYRTEC [Concomitant]

REACTIONS (1)
  - HEPATITIS CHOLESTATIC [None]
